FAERS Safety Report 5315426-1 (Version None)
Quarter: 2007Q2

REPORT INFORMATION
  Report Type: 
  Country: None (occurrence: None)
  Receive Date: 20070503
  Receipt Date: 20070425
  Transmission Date: 20071010
  Serious: Yes (Other)
  Sender: FDA-Public Use
  Company Number: PHEH2007US06300

PATIENT
  Age: 62 Year
  Sex: Male

DRUGS (10)
  1. ZOMETA [Suspect]
     Indication: METASTASES TO BONE
     Dosage: 4 MG MONTHLY
     Dates: start: 20040101, end: 20070326
  2. CALCIUM CHLORIDE [Concomitant]
  3. CENTRUM [Concomitant]
  4. FLOMAX [Concomitant]
  5. LORCET-HD [Concomitant]
  6. CLINDAMYCIN [Concomitant]
  7. EMCYT [Concomitant]
  8. LOTREL [Concomitant]
  9. PHENAZOPYRIDINE HCL TAB [Concomitant]
  10. CHEMOTHERAPEUTICS NOS [Concomitant]

REACTIONS (4)
  - INFECTION [None]
  - OSTEONECROSIS [None]
  - PAIN IN JAW [None]
  - TOOTH EXTRACTION [None]
